FAERS Safety Report 17441061 (Version 17)
Quarter: 2021Q2

REPORT INFORMATION
  Report Type: Report from Study
  Country: None (occurrence: NL)
  Receive Date: 20200220
  Receipt Date: 20210608
  Transmission Date: 20210716
  Serious: Yes (Hospitalization, Other)
  Sender: FDA-Public Use
  Company Number: NL-ABBVIE-20K-114-3280928-00

PATIENT
  Age: 72 Year
  Sex: Female

DRUGS (17)
  1. LEVODOPA [Concomitant]
     Active Substance: LEVODOPA
     Indication: PARKINSON^S DISEASE
     Dosage: AT 8.00, 12.00, 14.00, 17.00 AND 19.00. 100/25
     Route: 048
     Dates: start: 20110101, end: 20200127
  2. ROPINIROLE. [Concomitant]
     Active Substance: ROPINIROLE
     Indication: PARKINSON^S DISEASE
     Route: 048
     Dates: start: 20120101
  3. PERINDOPRIL [Concomitant]
     Active Substance: PERINDOPRIL
     Indication: HYPERTENSION
     Route: 048
     Dates: start: 20000101
  4. XARELTO [Concomitant]
     Active Substance: RIVAROXABAN
     Indication: ANTICOAGULANT THERAPY
     Route: 048
     Dates: start: 20000101
  5. DUODOPA [Suspect]
     Active Substance: CARBIDOPA\LEVODOPA
     Dosage: MD: 7, END: 1.5, CD: 4.2 ML/H, CND 3.4 ML/H
     Route: 050
  6. DUODOPA [Suspect]
     Active Substance: CARBIDOPA\LEVODOPA
     Dosage: MD: 7 ML, CD: 4.7 ML/H, ED: 1.5 ML, CND: 4.0 ML/H, END: 1.5 ML
     Route: 050
  7. LEVODOPA DISPER [Concomitant]
     Indication: PARKINSON^S DISEASE
     Dosage: 100/25 AT NIGHT
     Dates: start: 20110101
  8. PANTOPRAZOLE [Concomitant]
     Active Substance: PANTOPRAZOLE
     Indication: GASTROINTESTINAL DISORDER PROPHYLAXIS
     Route: 048
     Dates: start: 20180101
  9. FUROSEMIDE. [Concomitant]
     Active Substance: FUROSEMIDE
     Indication: DIURETIC THERAPY
     Route: 048
     Dates: start: 20000101
  10. DUODOPA [Suspect]
     Active Substance: CARBIDOPA\LEVODOPA
     Indication: PARKINSON^S DISEASE
     Dosage: MD: 7.0, CD: 2.4, ED: 1.0, CND: 2.2, END: 1.0
     Route: 050
     Dates: start: 20200127, end: 2020
  11. LEVODOPA HBS [Concomitant]
     Indication: PARKINSON^S DISEASE
     Dosage: 100/25, AT 07.00
     Route: 048
     Dates: start: 20200127
  12. GLICLAZIDE W/METFORMIN [Concomitant]
     Indication: DIABETES MELLITUS
     Route: 048
     Dates: start: 19900101
  13. LEVOTHYROXINE. [Concomitant]
     Active Substance: LEVOTHYROXINE
     Indication: THYROID DISORDER
     Route: 048
     Dates: start: 19900101
  14. LEVODOPA HBS [Concomitant]
     Dosage: AT 22.00
     Dates: start: 20200127
  15. LERCANIDIPINE [Concomitant]
     Active Substance: LERCANIDIPINE
     Indication: HYPERTENSION
     Route: 048
     Dates: start: 19900101
  16. SIMVASTATIN. [Concomitant]
     Active Substance: SIMVASTATIN
     Indication: BLOOD CHOLESTEROL
     Route: 048
     Dates: start: 20180101
  17. LEVODOPA BENSERAZIDE [Concomitant]
     Active Substance: BENSERAZIDE\LEVODOPA
     Indication: PRODUCT USED FOR UNKNOWN INDICATION
     Dosage: ONCE FOR THE NIGHT

REACTIONS (37)
  - Renal failure [Not Recovered/Not Resolved]
  - Diarrhoea [Not Recovered/Not Resolved]
  - Device placement issue [Not Recovered/Not Resolved]
  - Device loosening [Unknown]
  - Weight decreased [Not Recovered/Not Resolved]
  - Malaise [Recovered/Resolved]
  - Stoma site discharge [Not Recovered/Not Resolved]
  - Medical device site discolouration [Unknown]
  - Stoma site haemorrhage [Not Recovered/Not Resolved]
  - Fibroma [Not Recovered/Not Resolved]
  - Asthenia [Not Recovered/Not Resolved]
  - Stoma site reaction [Not Recovered/Not Resolved]
  - Therapeutic product effect decreased [Not Recovered/Not Resolved]
  - Stoma site erythema [Not Recovered/Not Resolved]
  - Stoma site discharge [Not Recovered/Not Resolved]
  - Pain in extremity [Not Recovered/Not Resolved]
  - Speech disorder [Not Recovered/Not Resolved]
  - Drug hypersensitivity [Not Recovered/Not Resolved]
  - Gait disturbance [Not Recovered/Not Resolved]
  - Freezing phenomenon [Not Recovered/Not Resolved]
  - Dysphagia [Not Recovered/Not Resolved]
  - Mobility decreased [Recovering/Resolving]
  - Syncope [Recovered/Resolved]
  - Urinary tract infection [Not Recovered/Not Resolved]
  - Fatigue [Unknown]
  - Musculoskeletal stiffness [Not Recovered/Not Resolved]
  - Influenza [Recovered/Resolved]
  - Intentional product misuse [Recovered/Resolved]
  - Diabetes mellitus [Recovering/Resolving]
  - Device dislocation [Unknown]
  - Decreased appetite [Recovered/Resolved]
  - On and off phenomenon [Not Recovered/Not Resolved]
  - Hyperkinesia [Not Recovered/Not Resolved]
  - Bradykinesia [Not Recovered/Not Resolved]
  - Device issue [Not Recovered/Not Resolved]
  - Muscle rigidity [Not Recovered/Not Resolved]
  - Somnolence [Not Recovered/Not Resolved]

NARRATIVE: CASE EVENT DATE: 2020
